FAERS Safety Report 10058358 (Version 1)
Quarter: 2014Q2

REPORT INFORMATION
  Report Type: Spontaneous
  Country: GB (occurrence: GB)
  Receive Date: 20140404
  Receipt Date: 20140404
  Transmission Date: 20141212
  Serious: Yes (Other)
  Sender: FDA-Public Use
  Company Number: GB-ACCORD-022806

PATIENT
  Age: 63 Year
  Sex: Male
  Weight: 114.3 kg

DRUGS (5)
  1. SIMVASTATIN [Suspect]
     Indication: HYPERCHOLESTEROLAEMIA
     Route: 048
     Dates: start: 19980101, end: 20140304
  2. DOXAZOSIN [Concomitant]
  3. BISOPROLOL [Concomitant]
  4. ACETYLSALICYLIC ACID [Concomitant]
     Dosage: ASPIRIN COATED
  5. AMLODIPINE [Concomitant]

REACTIONS (2)
  - Decreased interest [Unknown]
  - Asthenia [Not Recovered/Not Resolved]
